FAERS Safety Report 10353967 (Version 6)
Quarter: 2015Q4

REPORT INFORMATION
  Report Type: Spontaneous
  Country: NO (occurrence: NO)
  Receive Date: 20140731
  Receipt Date: 20151016
  Transmission Date: 20160304
  Serious: Yes (Other)
  Sender: FDA-Public Use
  Company Number: NO-TEVA-497249ISR

PATIENT
  Age: 55 Year
  Sex: Female

DRUGS (10)
  1. TRAMADOL. [Interacting]
     Active Substance: TRAMADOL
     Indication: PAIN IN EXTREMITY
     Dosage: 800 MILLIGRAM DAILY;
  2. TRAMADOL. [Interacting]
     Active Substance: TRAMADOL
     Indication: PAIN IN EXTREMITY
  3. TRAMADOL. [Interacting]
     Active Substance: TRAMADOL
     Indication: PAIN IN EXTREMITY
     Dosage: 600 MILLIGRAM DAILY;
     Route: 048
  4. CYMBALTA [Interacting]
     Active Substance: DULOXETINE HYDROCHLORIDE
     Indication: PAIN IN EXTREMITY
     Dosage: 60 MILLIGRAM DAILY;
  5. TRAMADOL. [Interacting]
     Active Substance: TRAMADOL
     Indication: PAIN IN EXTREMITY
     Dosage: 300 MILLIGRAM DAILY; NOT MORE THAN THREE TIMES DAILY
     Route: 048
  6. CIPROFLOXACIN. [Suspect]
     Active Substance: CIPROFLOXACIN
     Indication: URINARY TRACT INFECTION
     Route: 064
  7. TRAMADOL. [Interacting]
     Active Substance: TRAMADOL
     Indication: PAIN IN EXTREMITY
  8. CYMBALTA [Interacting]
     Active Substance: DULOXETINE HYDROCHLORIDE
     Indication: PAIN IN EXTREMITY
     Dosage: 60 MILLIGRAM DAILY;
     Route: 065
  9. TRAMADOL. [Interacting]
     Active Substance: TRAMADOL
     Indication: PAIN IN EXTREMITY
  10. TRAMADOL. [Interacting]
     Active Substance: TRAMADOL
     Indication: PAIN IN EXTREMITY

REACTIONS (14)
  - Pyrexia [Unknown]
  - Tremor [Unknown]
  - Drug interaction [Unknown]
  - Diarrhoea [Unknown]
  - Hypertonia [Unknown]
  - Anxiety [Unknown]
  - Clonus [Unknown]
  - Confusional state [Unknown]
  - Overdose [Unknown]
  - Tachycardia [Unknown]
  - Pain in extremity [Unknown]
  - Blood pressure increased [Unknown]
  - Serotonin syndrome [Unknown]
  - Hyperhidrosis [Unknown]
